FAERS Safety Report 8904142 (Version 1)
Quarter: 2012Q4

REPORT INFORMATION
  Report Type: 
  Country: US (occurrence: US)
  Receive Date: 20121112
  Receipt Date: 20121112
  Transmission Date: 20130627
  Serious: No
  Sender: FDA-Public Use
  Company Number: US-COVIDIEN/TYCO HEALTHCARE/MALLINCKRODT-T201203417

PATIENT
  Age: 81 Year
  Sex: Female

DRUGS (3)
  1. FENTANYL TRANSDERMAL SYSTEM [Suspect]
     Dosage: 25 ug/hr, Q 72 hrs
     Route: 062
     Dates: start: 20120825, end: 20120828
  2. METHADONE [Concomitant]
     Indication: PAIN
     Dosage: 5 mg, qid
     Route: 048
  3. NEXIUM                             /01479302/ [Concomitant]
     Indication: GASTROOESOPHAGEAL REFLUX DISEASE
     Dosage: UNK

REACTIONS (2)
  - Application site vesicles [Recovered/Resolved]
  - Application site pruritus [Recovered/Resolved]
